FAERS Safety Report 21578012 (Version 2)
Quarter: 2023Q1

REPORT INFORMATION
  Report Type: Other
  Country: US (occurrence: None)
  Receive Date: 20221110
  Receipt Date: 20230207
  Transmission Date: 20230417
  Serious: Yes (Death)
  Sender: FDA-Public Use
  Company Number: US-ROCHE-3214954

PATIENT
  Age: 28 Year
  Sex: Female

DRUGS (6)
  1. BEVACIZUMAB [Suspect]
     Active Substance: BEVACIZUMAB
     Indication: Glioblastoma
     Route: 065
     Dates: start: 201603, end: 201605
  2. VISMODEGIB [Suspect]
     Active Substance: VISMODEGIB
     Indication: Glioblastoma
     Route: 048
     Dates: start: 201506, end: 201605
  3. TEMOZOLOMIDE [Suspect]
     Active Substance: TEMOZOLOMIDE
     Indication: Glioblastoma
     Route: 065
  4. TEMOZOLOMIDE [Suspect]
     Active Substance: TEMOZOLOMIDE
     Route: 065
     Dates: start: 201506, end: 201603
  5. LAPATINIB [Suspect]
     Active Substance: LAPATINIB
     Indication: Glioblastoma
     Route: 065
  6. PEMBROLIZUMAB [Suspect]
     Active Substance: PEMBROLIZUMAB
     Indication: Glioblastoma
     Route: 065

REACTIONS (1)
  - Disease progression [Fatal]
